FAERS Safety Report 10155309 (Version 3)
Quarter: 2014Q2

REPORT INFORMATION
  Report Type: Spontaneous
  Country: CA (occurrence: CA)
  Receive Date: 20140506
  Receipt Date: 20140625
  Transmission Date: 20141212
  Serious: Yes (Other)
  Sender: FDA-Public Use
  Company Number: CA-PFIZER INC-2014123618

PATIENT
  Age: 31 Year
  Sex: Female

DRUGS (8)
  1. TECTA [Suspect]
     Indication: GASTROOESOPHAGEAL REFLUX DISEASE
     Dosage: 40 MG, UNK
     Route: 065
     Dates: start: 2012
  2. NICOTINE [Suspect]
     Dosage: 10 DF, 1 EVERY 1 DAYS; UNK
     Route: 045
  3. CYMBALTA [Suspect]
     Indication: DEPRESSION
     Dosage: 60 MG, UNK
     Route: 065
     Dates: start: 2012
  4. HYDROMORPHONE [Suspect]
     Dosage: 30 MG, UNK
     Route: 065
     Dates: start: 2008, end: 2012
  5. SUBOXONE [Suspect]
     Indication: DRUG DEPENDENCE
     Dosage: 12 MG, UNK
     Route: 060
     Dates: start: 201011, end: 2012
  6. SUBOXONE [Suspect]
     Dosage: 12 MG, UNK
     Route: 060
     Dates: start: 2013
  7. SUBUTEX [Suspect]
     Indication: DRUG DEPENDENCE
     Dosage: 12 MG, UNK
     Route: 065
     Dates: start: 2012, end: 2013
  8. SUBUTEX [Suspect]
     Dosage: 12.0 MG, UNK
     Route: 065
     Dates: start: 2012, end: 2013

REACTIONS (4)
  - Drug abuse [Unknown]
  - Hepatitis C [Unknown]
  - Premature separation of placenta [Unknown]
  - Placenta praevia [Unknown]
